FAERS Safety Report 4361568-7 (Version None)
Quarter: 2004Q2

REPORT INFORMATION
  Report Type: 
  Country: None (occurrence: None)
  Receive Date: 20040519
  Receipt Date: 20040519
  Transmission Date: 20050107
  Serious: Yes (Life-Threatening)
  Sender: FDA-Public Use
  Company Number: None

PATIENT
  Sex: Female
  Weight: 65 kg

DRUGS (15)
  1. AMIODARONE HCL [Suspect]
     Indication: ATRIAL FIBRILLATION
     Dosage: 1 MG/ML CONT INF. IV
     Route: 042
     Dates: start: 20040202
  2. ALPRAZOLAM [Concomitant]
  3. ASPIRIN [Concomitant]
  4. ATORVASTATIN CALCIUM [Concomitant]
  5. DILTIAZEM [Concomitant]
  6. GUAIFENESIN [Concomitant]
  7. IBUPROFEN [Concomitant]
  8. KETOROLAC TROMETHAMINE [Concomitant]
  9. LANSOPRAZOLE [Concomitant]
  10. MEPERIDINE HCL [Concomitant]
  11. HEPARIN [Concomitant]
  12. MORPHINE SULFATE [Concomitant]
  13. TEMAZEPAM [Concomitant]
  14. WARFARIN SODIUM [Concomitant]
  15. OXYCODONE AND ACETAMINOPHEN [Concomitant]

REACTIONS (2)
  - BLOOD PRESSURE DIASTOLIC DECREASED [None]
  - BRADYCARDIA [None]
